FAERS Safety Report 4314414-1 (Version None)
Quarter: 2004Q1

REPORT INFORMATION
  Report Type: 
  Country: None (occurrence: None)
  Receive Date: 20040309
  Receipt Date: 20040226
  Transmission Date: 20041129
  Serious: Yes (Disabling)
  Sender: FDA-Public Use
  Company Number: CH-GLAXOSMITHKLINE-B0324945A

PATIENT
  Age: 38 Year
  Sex: Male

DRUGS (9)
  1. LAMIVUDINE [Suspect]
     Dates: start: 19960601
  2. LAMIVUDINE [Suspect]
     Indication: HIV INFECTION
     Route: 048
     Dates: start: 19960801, end: 20030301
  3. ZIAGEN [Suspect]
     Indication: HIV INFECTION
     Route: 048
     Dates: start: 20021001, end: 20030101
  4. STAVUDINE [Suspect]
     Indication: HIV INFECTION
     Route: 048
     Dates: start: 19960801, end: 20010301
  5. EFAVIRENZ [Suspect]
     Indication: HIV INFECTION
     Route: 048
     Dates: start: 20021001, end: 20030101
  6. DIDANOSINE [Suspect]
     Indication: HIV INFECTION
     Route: 048
  7. INDINAVIR [Concomitant]
     Indication: HIV INFECTION
     Route: 048
     Dates: start: 19960801, end: 20011101
  8. ZIDOVUDINE [Concomitant]
     Dates: start: 19960601
  9. RECOMBINANT FACTOR VIII [Concomitant]
     Dates: start: 20020101, end: 20030101

REACTIONS (5)
  - CONDITION AGGRAVATED [None]
  - FACTOR VIII DEFICIENCY [None]
  - HAEMARTHROSIS [None]
  - HAEMORRHAGIC DIATHESIS [None]
  - MUSCLE HAEMORRHAGE [None]
